FAERS Safety Report 8278016-7 (Version None)
Quarter: 2012Q2

REPORT INFORMATION
  Report Type: 
  Country: None (occurrence: None)
  Receive Date: 20120412
  Receipt Date: 20120402
  Transmission Date: 20120825
  Serious: Yes (Other)
  Sender: FDA-Public Use
  Company Number: CA-FRI-1000029716

PATIENT
  Age: 55 Year
  Sex: Female

DRUGS (9)
  1. BUTRANS [Suspect]
     Dosage: 240 MCG
     Route: 050
  2. CIPRO XR [Concomitant]
  3. ESCITALOPRAM [Suspect]
     Dosage: 20 MG
     Route: 048
  4. CESAMET [Suspect]
     Route: 048
  5. BACLOFEN [Suspect]
     Dosage: 60 MG
  6. BUTRANS [Suspect]
     Dosage: 360 MCG
     Route: 050
  7. CLONAZEPAM [Suspect]
     Dosage: 3 MG
     Route: 048
  8. BUTRANS [Suspect]
     Dosage: 120 MCG
     Route: 050
  9. BUTRANS [Suspect]
     Dosage: 480 MCG
     Route: 050

REACTIONS (20)
  - DISTURBANCE IN ATTENTION [None]
  - EUPHORIC MOOD [None]
  - GAIT DISTURBANCE [None]
  - PULSE PRESSURE INCREASED [None]
  - URINARY TRACT INFECTION [None]
  - DIZZINESS [None]
  - DRUG INTERACTION [None]
  - MUSCLE SPASMS [None]
  - SOMNOLENCE [None]
  - BALANCE DISORDER [None]
  - PALPITATIONS [None]
  - ANXIETY [None]
  - DIARRHOEA [None]
  - DISORIENTATION [None]
  - DYSPNOEA [None]
  - HALLUCINATION [None]
  - ASTHENIA [None]
  - HEADACHE [None]
  - HYPOPNOEA [None]
  - VOMITING [None]
